FAERS Safety Report 5202040-1 (Version None)
Quarter: 2007Q1

REPORT INFORMATION
  Report Type: 
  Country: None (occurrence: None)
  Receive Date: 20070103
  Receipt Date: 20061227
  Transmission Date: 20070707
  Serious: Yes (Disabling)
  Sender: FDA-Public Use
  Company Number: RES-41U

PATIENT
  Sex: Female

DRUGS (5)
  1. RESCULA [Suspect]
     Indication: OCULAR HYPERTENSION
     Dosage: 4 DROPS; TOPICAL OPHTHALMIC INSTILLATION
     Route: 047
     Dates: start: 20060627, end: 20060928
  2. SANCOBA OPHTHALMIC SOLUTION (CYANOCOBALAMIN) [Concomitant]
  3. HYALEIN (SODIUM HYALURONATE) [Concomitant]
  4. LENDORM [Concomitant]
  5. TAKEPRON CAPSULES (LANSOPRAZOLE) [Concomitant]

REACTIONS (1)
  - MACULAR OEDEMA [None]
